FAERS Safety Report 5321743-1 (Version None)
Quarter: 2007Q2

REPORT INFORMATION
  Report Type: 
  Country: None (occurrence: None)
  Receive Date: 20070510
  Receipt Date: 20070430
  Transmission Date: 20071010
  Serious: Yes (Hospitalization, Other)
  Sender: FDA-Public Use
  Company Number: US-PFIZER INC-2006065714

PATIENT
  Sex: Female
  Weight: 71.7 kg

DRUGS (4)
  1. ATORVASTATIN CALCIUM [Suspect]
     Indication: BLOOD CHOLESTEROL INCREASED
     Route: 048
     Dates: start: 20050101, end: 20060515
  2. SYNTHROID [Concomitant]
     Route: 065
  3. VALSARTAN [Concomitant]
     Route: 065
  4. CLONAZEPAM [Concomitant]
     Route: 065

REACTIONS (11)
  - ABASIA [None]
  - CHEST DISCOMFORT [None]
  - DECREASED APPETITE [None]
  - DYSPNOEA [None]
  - FLATULENCE [None]
  - INFLAMMATION [None]
  - MUSCLE SPASMS [None]
  - MUSCULOSKELETAL DISCOMFORT [None]
  - MYALGIA [None]
  - NAUSEA [None]
  - PAIN IN EXTREMITY [None]
